FAERS Safety Report 8509834-5 (Version None)
Quarter: 2012Q2

REPORT INFORMATION
  Report Type: 
  Country: None (occurrence: None)
  Receive Date: 20120405
  Receipt Date: 20090610
  Transmission Date: 20120825
  Serious: Yes (Hospitalization)
  Sender: FDA-Public Use
  Company Number: PHEH2009US06058

PATIENT
  Age: 62 Year
  Sex: Female

DRUGS (1)
  1. RECLAST [Suspect]
     Indication: OSTEOPOROSIS
     Dosage: 5 MG, ONCE YEARLY, IV INFUSION
     Dates: start: 20090531

REACTIONS (5)
  - HEADACHE [None]
  - WHITE BLOOD CELL COUNT INCREASED [None]
  - INFLUENZA LIKE ILLNESS [None]
  - VOMITING [None]
  - RASH [None]
